FAERS Safety Report 5394274-0 (Version None)
Quarter: 2007Q3

REPORT INFORMATION
  Report Type: 
  Country: None (occurrence: None)
  Receive Date: 20070723
  Receipt Date: 20070522
  Transmission Date: 20080115
  Serious: No
  Sender: FDA-Public Use
  Company Number: A0652381A

PATIENT
  Age: 58 Year
  Sex: Male

DRUGS (8)
  1. AVANDIA [Suspect]
     Dosage: 8MG PER DAY
     Route: 048
     Dates: start: 20050101, end: 20070521
  2. GLUCOTROL [Concomitant]
  3. METFORMIN HCL [Concomitant]
  4. TRICOR [Concomitant]
  5. ASPIRIN [Concomitant]
  6. GLUCOPHAGE [Concomitant]
  7. ZETIA [Concomitant]
  8. MULTIVITAMIN [Concomitant]

REACTIONS (2)
  - CHEST PAIN [None]
  - MUSCLE SPASMS [None]
